FAERS Safety Report 12998695 (Version 1)
Quarter: 2016Q4

REPORT INFORMATION
  Report Type: Spontaneous
  Country: US (occurrence: US)
  Receive Date: 20161204
  Receipt Date: 20161204
  Transmission Date: 20170207
  Serious: Yes (Disabling, Other)
  Sender: FDA-Public Use
  Company Number: None

PATIENT
  Age: 53 Year
  Sex: Female
  Weight: 56.7 kg

DRUGS (3)
  1. LAMICTAL [Suspect]
     Active Substance: LAMOTRIGINE
     Indication: LEUKOENCEPHALOPATHY
     Dosage: QUANTITY:1 CAPSULE(S);OTHER FREQUENCY:TITRATION UP: 2:1;?
     Route: 048
  2. AMRIX [Suspect]
     Active Substance: CYCLOBENZAPRINE HYDROCHLORIDE
     Indication: MUSCLE SPASMS
     Dosage: ?          QUANTITY:1 CAPSULE(S);?
     Route: 048
  3. LAMICTAL [Suspect]
     Active Substance: LAMOTRIGINE
     Indication: SEIZURE
     Dosage: QUANTITY:1 CAPSULE(S);OTHER FREQUENCY:TITRATION UP: 2:1;?
     Route: 048

REACTIONS (14)
  - Hypersomnia [None]
  - Paralysis [None]
  - Pain [None]
  - Arthralgia [None]
  - Activities of daily living impaired [None]
  - Seizure [None]
  - Insomnia [None]
  - Myoclonic epilepsy [None]
  - Fatigue [None]
  - Immobile [None]
  - Flank pain [None]
  - Muscle spasms [None]
  - Coordination abnormal [None]
  - Gait disturbance [None]

NARRATIVE: CASE EVENT DATE: 20161020
